FAERS Safety Report 4941370-5 (Version None)
Quarter: 2006Q1

REPORT INFORMATION
  Report Type: 
  Country: None (occurrence: None)
  Receive Date: 20060310
  Receipt Date: 20060310
  Transmission Date: 20060701
  Serious: Yes (Life-Threatening, Hospitalization)
  Sender: FDA-Public Use
  Company Number: None

PATIENT
  Age: 64 Year
  Sex: Male
  Weight: 110 kg

DRUGS (14)
  1. BEVACIZUMAB IV [Suspect]
     Indication: RECTAL CANCER
     Dosage: 5 MG/KG =550 MG
     Dates: start: 20060213
  2. OXALIPLATIN IV [Suspect]
     Indication: RECTAL CANCER
     Dosage: 85 MG/M2 = 196 MG
     Route: 042
     Dates: start: 20060213
  3. LEUKOVORIN IV [Suspect]
     Indication: RECTAL CANCER
     Dosage: 400MG/M2 = 920 MG
     Route: 042
     Dates: start: 20060213
  4. 5 FLUOROUORACIL IV [Suspect]
     Indication: RECTAL CANCER
     Dosage: SEE IMAGE
     Route: 042
     Dates: start: 20060213, end: 20060215
  5. 5 FLUOROUORACIL IV [Suspect]
     Indication: RECTAL CANCER
     Dosage: SEE IMAGE
     Route: 042
     Dates: start: 20060213
  6. TYLENOL (CAPLET) [Concomitant]
  7. ZOFRAN [Concomitant]
  8. DECADRON SRC [Concomitant]
  9. COMPAZINE [Concomitant]
  10. ALTACE [Concomitant]
  11. ATENOLOL [Concomitant]
  12. BENADRYL [Concomitant]
  13. EPINEPHRINE [Concomitant]
  14. LIDOCAINE [Concomitant]

REACTIONS (10)
  - ARRHYTHMIA [None]
  - CARDIAC ARREST [None]
  - CHEST PAIN [None]
  - DYSARTHRIA [None]
  - EJECTION FRACTION DECREASED [None]
  - ELECTROCARDIOGRAM QT CORRECTED INTERVAL PROLONGED [None]
  - NAUSEA [None]
  - TREMOR [None]
  - VENTRICULAR DYSFUNCTION [None]
  - VENTRICULAR FIBRILLATION [None]
